FAERS Safety Report 12506766 (Version 2)
Quarter: 2016Q3

REPORT INFORMATION
  Report Type: Report from Study
  Country: JP (occurrence: JP)
  Receive Date: 20160628
  Receipt Date: 20160802
  Transmission Date: 20161109
  Serious: Yes (Life-Threatening, Hospitalization)
  Sender: FDA-Public Use
  Company Number: JP-ASTRAZENECA-2015SE27386

PATIENT
  Age: 75 Year
  Sex: Female
  Weight: 63 kg

DRUGS (7)
  1. AMARYL [Concomitant]
     Active Substance: GLIMEPIRIDE
     Indication: TYPE 2 DIABETES MELLITUS
     Dosage: 4 MG; NUMBER OF SEPARATE DOSAGES UNKNOWN
     Route: 048
     Dates: start: 20111116
  2. BYDUREON [Suspect]
     Active Substance: EXENATIDE
     Indication: TYPE 2 DIABETES MELLITUS
     Route: 058
     Dates: start: 20140214, end: 20140321
  3. BYDUREON [Suspect]
     Active Substance: EXENATIDE
     Indication: TYPE 2 DIABETES MELLITUS
     Route: 058
     Dates: start: 20140519
  4. BASEN [Concomitant]
     Active Substance: VOGLIBOSE
     Indication: TYPE 2 DIABETES MELLITUS
     Dosage: 1.2 MG; NUMBER OF SEPARATE DOSAGES UNKNOWN
     Route: 048
     Dates: start: 20140811
  5. METGLUCO [Concomitant]
     Active Substance: METFORMIN HYDROCHLORIDE
     Indication: TYPE 2 DIABETES MELLITUS
     Dosage: 1000 MG; NUMBER OF SEPARATE DOSAGES UNKNOWN
     Route: 048
     Dates: start: 20110405
  6. BASEN [Concomitant]
     Active Substance: VOGLIBOSE
     Indication: TYPE 2 DIABETES MELLITUS
     Dosage: 1.2 MG; NUMBER OF SEPARATE DOSAGES UNKNOWN
     Route: 048
     Dates: start: 20111116, end: 20140411
  7. BYETTA SUBCUTANEOUS INJECTION 5 MICRO GRAM PEN 300 [Concomitant]
     Indication: TYPE 2 DIABETES MELLITUS
     Dosage: 20 UG; NUMBER OF SEPARATE DOSAGES UNKNOWN
     Route: 058
     Dates: start: 20111116, end: 20140213

REACTIONS (2)
  - Diabetes mellitus [Recovered/Resolved]
  - Lymphoma [Not Recovered/Not Resolved]

NARRATIVE: CASE EVENT DATE: 20140319
